FAERS Safety Report 7330940-5 (Version None)
Quarter: 2011Q1

REPORT INFORMATION
  Report Type: 
  Country: None (occurrence: None)
  Receive Date: 20110304
  Receipt Date: 20110222
  Transmission Date: 20110831
  Serious: Yes (Other)
  Sender: FDA-Public Use
  Company Number: CA-JNJFOC-20110208422

PATIENT
  Sex: Female

DRUGS (1)
  1. REMICADE [Suspect]
     Indication: CROHN'S DISEASE
     Dosage: STOPPED APRIL/MAY-2010
     Route: 042

REACTIONS (2)
  - NEOPLASM MALIGNANT [None]
  - INTESTINAL OBSTRUCTION [None]
